FAERS Safety Report 23075654 (Version 1)
Quarter: 2023Q4

REPORT INFORMATION
  Report Type: Spontaneous
  Country: US (occurrence: US)
  Receive Date: 20231017
  Receipt Date: 20231017
  Transmission Date: 20240109
  Serious: Yes (Hospitalization)
  Sender: FDA-Public Use
  Company Number: US-VERTEX PHARMACEUTICALS-2023-015344

PATIENT
  Age: 24 Year
  Sex: Female

DRUGS (4)
  1. TRIKAFTA [Suspect]
     Active Substance: ELEXACAFTOR\IVACAFTOR\TEZACAFTOR
     Indication: Cystic fibrosis
     Dosage: UNKNOWN FREQUENCY
     Route: 048
     Dates: start: 202008
  2. AZITHROMYCIN [Concomitant]
     Active Substance: AZITHROMYCIN
  3. CAYSTON [Concomitant]
     Active Substance: AZTREONAM
  4. SERTRALINE [Concomitant]
     Active Substance: SERTRALINE HYDROCHLORIDE
     Dosage: UNK
     Dates: end: 202009

REACTIONS (3)
  - Infective pulmonary exacerbation of cystic fibrosis [Recovering/Resolving]
  - SARS-CoV-2 test positive [Recovering/Resolving]
  - Human metapneumovirus test positive [Recovering/Resolving]

NARRATIVE: CASE EVENT DATE: 20230101
